FAERS Safety Report 5580386-5 (Version None)
Quarter: 2008Q1

REPORT INFORMATION
  Report Type: 
  Country: None (occurrence: None)
  Receive Date: 20080103
  Receipt Date: 20071224
  Transmission Date: 20080703
  Serious: Yes (Death, Hospitalization)
  Sender: FDA-Public Use
  Company Number: CN-ROCHE-538695

PATIENT
  Age: 71 Year
  Sex: Female

DRUGS (2)
  1. XELODA [Suspect]
     Indication: CHEMOTHERAPY
     Route: 048
     Dates: start: 20071002, end: 20071206
  2. OXALIPLATIN [Concomitant]
     Indication: CHEMOTHERAPY
     Dosage: DRUG REPORTED AS AI HENG
     Route: 042
     Dates: start: 20071001, end: 20071201

REACTIONS (1)
  - CEREBRAL HAEMORRHAGE [None]
